FAERS Safety Report 10194799 (Version 1)
Quarter: 2014Q2

REPORT INFORMATION
  Report Type: Spontaneous
  Country: US (occurrence: US)
  Receive Date: 20140526
  Receipt Date: 20140526
  Transmission Date: 20141212
  Serious: No
  Sender: FDA-Public Use
  Company Number: US-009507513-1405USA003638

PATIENT
  Sex: Female

DRUGS (5)
  1. PROVENTIL [Suspect]
     Indication: ASTHMA
     Dosage: TWO PUFFS FOUR TIME A DAY
     Route: 055
     Dates: start: 1996
  2. PROVENTIL [Suspect]
     Dosage: UNK, Q3H
     Route: 055
  3. PROVENTIL [Suspect]
     Dosage: UNK, Q2H
     Route: 055
     Dates: end: 20140428
  4. ALBUTEROL [Suspect]
     Dosage: UNK
  5. SEREVENT [Concomitant]
     Dosage: UNK

REACTIONS (3)
  - Bronchiectasis [Recovering/Resolving]
  - Drug dependence [Recovering/Resolving]
  - Inappropriate schedule of drug administration [Unknown]
